FAERS Safety Report 24590311 (Version 1)
Quarter: 2024Q4

REPORT INFORMATION
  Report Type: Spontaneous
  Country: US (occurrence: US)
  Receive Date: 20241107
  Receipt Date: 20241107
  Transmission Date: 20250115
  Serious: Yes (Other)
  Sender: PIERRE FABRE MEDICAMENT
  Company Number: US-PFM-2024-05934

PATIENT
  Age: 1 Year
  Sex: Female
  Weight: 7.601 kg

DRUGS (1)
  1. HEMANGEOL [Suspect]
     Active Substance: PROPRANOLOL HYDROCHLORIDE
     Indication: Haemangioma
     Dosage: 3 ML, BID (2/DAY)
     Dates: start: 20231014

REACTIONS (1)
  - Neuroblastoma [Unknown]

NARRATIVE: CASE EVENT DATE: 20240901
